FAERS Safety Report 10186012 (Version 2)
Quarter: 2014Q4

REPORT INFORMATION
  Report Type: Spontaneous
  Country: FR (occurrence: FR)
  Receive Date: 20140521
  Receipt Date: 20141203
  Transmission Date: 20150528
  Serious: Yes (Hospitalization)
  Sender: FDA-Public Use
  Company Number: FR-BRISTOL-MYERS SQUIBB COMPANY-20732954

PATIENT
  Age: 90 Year
  Sex: Female

DRUGS (11)
  1. FOLIC ACID. [Concomitant]
     Active Substance: FOLIC ACID
  2. PARACETAMOL [Suspect]
     Active Substance: ACETAMINOPHEN
     Dates: start: 20140408
  3. ZOPICLONE [Concomitant]
     Active Substance: ZOPICLONE
  4. INNOHEP [Suspect]
     Active Substance: TINZAPARIN SODIUM
     Route: 058
     Dates: start: 20140404, end: 20140412
  5. TARDYFERON B9 [Suspect]
     Active Substance: FERROUS SULFATE\FOLIC ACID
     Route: 048
     Dates: start: 20140408, end: 20140412
  6. IBUPROFEN. [Concomitant]
     Active Substance: IBUPROFEN
  7. ENALAPRIL MALEATE. [Concomitant]
     Active Substance: ENALAPRIL MALEATE
  8. NEORECORMON [Suspect]
     Active Substance: ERYTHROPOIETIN
  9. COUMADINE [Suspect]
     Active Substance: WARFARIN SODIUM
     Dosage: UNTIL 14APR2014?RECHALLENGE ON 23APR2014?05-MAY-201:2 MG/D
     Route: 048
     Dates: start: 20140404
  10. CEFTRIAXONE. [Suspect]
     Active Substance: CEFTRIAXONE
     Route: 042
     Dates: start: 20140405, end: 20140412
  11. TIMOFEROL [Concomitant]
     Active Substance: ASCORBIC ACID\FERROUS SULFATE
     Dosage: CAPS

REACTIONS (4)
  - Adrenal haematoma [Unknown]
  - Acute kidney injury [Unknown]
  - Pleural effusion [Unknown]
  - Adrenal haemorrhage [Unknown]

NARRATIVE: CASE EVENT DATE: 20140414
